FAERS Safety Report 15720147 (Version 3)
Quarter: 2019Q1

REPORT INFORMATION
  Report Type: Spontaneous
  Country: US (occurrence: US)
  Receive Date: 20181213
  Receipt Date: 20190121
  Transmission Date: 20190417
  Serious: Yes (Hospitalization)
  Sender: FDA-Public Use
  Company Number: US-UNITED THERAPEUTICS-UNT-2018-020387

PATIENT
  Age: 2 Year
  Sex: Female
  Weight: 14.2 kg

DRUGS (7)
  1. REMODULIN [Suspect]
     Active Substance: TREPROSTINIL
     Indication: PULMONARY ARTERIAL HYPERTENSION
     Dosage: 0.0484 ?G/KG, CONTINUING
     Route: 058
     Dates: start: 20171004
  2. REMODULIN [Suspect]
     Active Substance: TREPROSTINIL
     Indication: ACQUIRED DIAPHRAGMATIC EVENTRATION
  3. REMODULIN [Suspect]
     Active Substance: TREPROSTINIL
     Indication: ACQUIRED DIAPHRAGMATIC EVENTRATION
  4. REMODULIN [Suspect]
     Active Substance: TREPROSTINIL
     Indication: PULMONARY HYPERTENSION
     Dosage: 0.0484 ?G/KG, CONTINUING, PUMP RATE OF 0.016
     Route: 058
     Dates: start: 20181101
  5. REMODULIN [Suspect]
     Active Substance: TREPROSTINIL
     Indication: PULMONARY HYPERTENSION
     Dosage: 0.0484 ?G/KG, CONTINUING, PUMP RATE OF 0.016
     Route: 058
     Dates: start: 20181101
  6. REMODULIN [Suspect]
     Active Substance: TREPROSTINIL
     Indication: PULMONARY ARTERIAL HYPERTENSION
     Dosage: 0.0484 ?G/KG, CONTINUING
     Route: 058
     Dates: start: 20171004
  7. SILDENAFIL. [Concomitant]
     Active Substance: SILDENAFIL
     Indication: PRODUCT USED FOR UNKNOWN INDICATION
     Dosage: 10 MG, TID
     Route: 065

REACTIONS (3)
  - Hypoxia [Unknown]
  - Respiratory syncytial virus bronchiolitis [Unknown]
  - Pneumonia aspiration [Unknown]

NARRATIVE: CASE EVENT DATE: 20181205
